FAERS Safety Report 17386710 (Version 1)
Quarter: 2020Q1

REPORT INFORMATION
  Report Type: Spontaneous
  Country: US (occurrence: US)
  Receive Date: 20200206
  Receipt Date: 20200206
  Transmission Date: 20200409
  Serious: No
  Sender: FDA-Public Use
  Company Number: US-PFIZER INC-2019305298

PATIENT
  Age: 65 Year
  Sex: Female
  Weight: 58.6 kg

DRUGS (28)
  1. RAPAMUNE [Suspect]
     Active Substance: SIROLIMUS
     Dosage: 1 MG, DAILY
     Route: 048
     Dates: start: 202001
  2. RAPAMUNE [Suspect]
     Active Substance: SIROLIMUS
     Dosage: 0.5 MG, UNK
     Route: 048
  3. ZORTRESS [Concomitant]
     Active Substance: EVEROLIMUS
     Indication: HEART TRANSPLANT
     Dosage: UNK
     Dates: start: 2014
  4. VITAMIN D3 [Concomitant]
     Active Substance: CHOLECALCIFEROL
     Indication: ROUTINE HEALTH MAINTENANCE
  5. HYDROXYCHLOROQUINE [Concomitant]
     Active Substance: HYDROXYCHLOROQUINE
     Indication: ARTHRITIS
     Dosage: UNK
  6. RAPAMUNE [Suspect]
     Active Substance: SIROLIMUS
     Indication: HEART TRANSPLANT
     Dosage: 2 TABLETS ONCE A DAY FOR A TOTAL OF 2 MG
     Route: 048
     Dates: end: 201911
  7. TYLENOL [Concomitant]
     Active Substance: ACETAMINOPHEN
     Indication: PAIN
     Dosage: UNK, AS NEEDED
  8. ATORVASTATIN [Concomitant]
     Active Substance: ATORVASTATIN
     Indication: BLOOD CHOLESTEROL INCREASED
     Dosage: UNK
  9. VITAMIN D3 [Concomitant]
     Active Substance: CHOLECALCIFEROL
     Indication: OSTEOPOROSIS
     Dosage: UNK
  10. PREMARIN [Concomitant]
     Active Substance: ESTROGENS, CONJUGATED
     Indication: BLOOD OESTROGEN ABNORMAL
     Dosage: UNK
  11. FUROSEMIDE. [Concomitant]
     Active Substance: FUROSEMIDE
     Dosage: UNK
  12. LEVOTHYROXINE. [Concomitant]
     Active Substance: LEVOTHYROXINE
     Indication: THYROID DISORDER
     Dosage: UNK
  13. LOSARTAN. [Concomitant]
     Active Substance: LOSARTAN
     Indication: HYPERTENSION
     Dosage: UNK
  14. MAGNESIUM OXIDE. [Concomitant]
     Active Substance: MAGNESIUM OXIDE
     Indication: MAGNESIUM DEFICIENCY
     Dosage: UNK
  15. TACROLIMUS. [Concomitant]
     Active Substance: TACROLIMUS
     Dosage: UNK
  16. CHLORHEXIDINE [Concomitant]
     Active Substance: CHLORHEXIDINE
     Indication: STOMATITIS
     Dosage: UNK
  17. CRANBERRY CONCENTRATE [ASCORBIC ACID;VACCINIUM MACROCARPON FRUIT] [Concomitant]
     Dosage: UNK
  18. IRON [Concomitant]
     Active Substance: IRON
     Indication: ROUTINE HEALTH MAINTENANCE
     Dosage: UNK
  19. RAPAMUNE [Suspect]
     Active Substance: SIROLIMUS
     Dosage: 1 MG, UNK
  20. TEMAZEPAM. [Concomitant]
     Active Substance: TEMAZEPAM
     Indication: SLEEP DISORDER
     Dosage: UNK
  21. CALCIUM [Concomitant]
     Active Substance: CALCIUM
     Indication: OSTEOPOROSIS
     Dosage: UNK
  22. PREDNISONE. [Concomitant]
     Active Substance: PREDNISONE
     Indication: ARTHRITIS
     Dosage: UNK
  23. SULFASALAZINE. [Concomitant]
     Active Substance: SULFASALAZINE
     Indication: ARTHRITIS
     Dosage: UNK
  24. SIROLIMUS. [Concomitant]
     Active Substance: SIROLIMUS
     Dosage: UNK
  25. CYCLOSPORINE. [Concomitant]
     Active Substance: CYCLOSPORINE
     Indication: DRY EYE
     Dosage: UNK
  26. DICLOFENAC [Concomitant]
     Active Substance: DICLOFENAC
     Indication: RHEUMATOID ARTHRITIS
     Dosage: UNK
  27. FOLIC ACID. [Concomitant]
     Active Substance: FOLIC ACID
     Indication: ROUTINE HEALTH MAINTENANCE
     Dosage: UNK
  28. PROLIA [Concomitant]
     Active Substance: DENOSUMAB
     Indication: OSTEOPOROSIS
     Dosage: UNK

REACTIONS (4)
  - Intercepted product dispensing error [Unknown]
  - Gastric disorder [Unknown]
  - Off label use [Unknown]
  - Product use in unapproved indication [Unknown]
